FAERS Safety Report 8066355-4 (Version None)
Quarter: 2012Q1

REPORT INFORMATION
  Report Type: 
  Country: None (occurrence: None)
  Receive Date: 20120124
  Receipt Date: 20120116
  Transmission Date: 20120608
  Serious: Yes (Hospitalization, Other)
  Sender: FDA-Public Use
  Company Number: US-BAYER-2011-075111

PATIENT
  Sex: Female
  Weight: 77.098 kg

DRUGS (5)
  1. YASMIN [Suspect]
     Indication: PREMENSTRUAL SYNDROME
  2. PREDNISONE TAB [Concomitant]
     Dosage: UNK
     Dates: start: 20010101, end: 20110101
  3. HYDROCODONE BITARTRATE [Concomitant]
     Dosage: UNK
     Dates: start: 20010101, end: 20110101
  4. YASMIN [Suspect]
     Indication: DYSMENORRHOEA
     Dosage: UNK
     Dates: start: 20050723, end: 20051031
  5. OMEPRAZOLE [Concomitant]
     Dosage: UNK
     Dates: start: 20010101, end: 20110101

REACTIONS (5)
  - INJURY [None]
  - THROMBOCYTOPENIA [None]
  - CEREBROVASCULAR ACCIDENT [None]
  - PAIN [None]
  - THROMBOSIS [None]
